FAERS Safety Report 13916785 (Version 1)
Quarter: 2017Q3

REPORT INFORMATION
  Report Type: Spontaneous
  Country: US (occurrence: US)
  Receive Date: 20170829
  Receipt Date: 20170829
  Transmission Date: 20171127
  Serious: Yes (Hospitalization, Other)
  Sender: FDA-Public Use
  Company Number: US-JNJFOC-20170821660

PATIENT
  Age: 75 Year
  Sex: Female
  Weight: 57.61 kg

DRUGS (3)
  1. XARELTO [Suspect]
     Active Substance: RIVAROXABAN
     Indication: ATRIAL FIBRILLATION
     Route: 048
     Dates: start: 201508
  2. XARELTO [Suspect]
     Active Substance: RIVAROXABAN
     Indication: CEREBROVASCULAR ACCIDENT PROPHYLAXIS
     Route: 048
     Dates: start: 201508
  3. LISINOPRIL. [Concomitant]
     Active Substance: LISINOPRIL
     Indication: BLOOD PRESSURE ABNORMAL
     Route: 065

REACTIONS (8)
  - Platelet count decreased [Unknown]
  - Arrhythmia [Recovered/Resolved]
  - Atrial fibrillation [Unknown]
  - Post procedural haemorrhage [Recovered/Resolved]
  - Mean cell volume abnormal [Unknown]
  - Vitamin B12 increased [Unknown]
  - Product expiration date issue [Unknown]
  - Product lot number issue [Unknown]

NARRATIVE: CASE EVENT DATE: 2017
